FAERS Safety Report 11184495 (Version 4)
Quarter: 2015Q3

REPORT INFORMATION
  Report Type: Spontaneous
  Country: US (occurrence: US)
  Receive Date: 20150612
  Receipt Date: 20150703
  Transmission Date: 20151125
  Serious: Yes (Other)
  Sender: FDA-Public Use
  Company Number: US-AMGEN-USASP2015055995

PATIENT
  Age: 61 Year
  Sex: Male
  Weight: 85 kg

DRUGS (10)
  1. ENBREL [Suspect]
     Active Substance: ETANERCEPT
     Indication: RHEUMATOID ARTHRITIS
     Dosage: 50 MG, QWK
     Route: 058
     Dates: start: 20150512, end: 20150607
  2. CARDURA [Concomitant]
     Active Substance: DOXAZOSIN MESYLATE
     Dosage: 4 MG, TABLET
     Route: 048
  3. ASPIRIN                            /00002701/ [Concomitant]
     Active Substance: ASPIRIN
     Dosage: TAKE ONE TABLET BY MOUTH, EVERYDAY, 360 TABLET
     Route: 048
  4. ZOCOR [Concomitant]
     Active Substance: SIMVASTATIN
     Dosage: TAKE ONE TABLET BY MOUTH EVERY EVENING, 30 TABLET
     Route: 048
  5. PLETAL [Concomitant]
     Active Substance: CILOSTAZOL
     Dosage: TAKE ONE TABLET BY MOUTH, TWICE A DAY, 60 TABLET
     Route: 048
  6. PLAQUENIL [Concomitant]
     Active Substance: HYDROXYCHLOROQUINE SULFATE
     Dosage: TAKE 3 TABLETS (600 MG TOTAL) BY MOUTH ONCE DAILY, 90 TABLETS
     Route: 048
  7. PRILOSEC [Concomitant]
     Active Substance: OMEPRAZOLE MAGNESIUM
     Dosage: TAKE 1 CAPSULE (40 MG TOTAL) BY MOUTH ONCE DAILY
     Route: 048
  8. MOBIC [Suspect]
     Active Substance: MELOXICAM
     Indication: PRODUCT USED FOR UNKNOWN INDICATION
     Dosage: TAKE 1 TABLET BY MOUTH ONCE DAILY, 30 TABLET
     Route: 048
  9. DELTASONE [Concomitant]
     Active Substance: PREDNISONE
     Dosage: TAKE 4 TABLETS (10 MG TOTAL) BY MOUTH ONCE DAILY, 360 TABLET
     Route: 048
  10. DESYREL [Concomitant]
     Active Substance: TRAZODONE HYDROCHLORIDE
     Indication: INSOMNIA
     Dosage: TAKE 1 TO 3 TABLETS BY MOUTH EVERY NIGHT AT BEDTIME,90 TABLET
     Route: 048

REACTIONS (27)
  - Rash pruritic [Not Recovered/Not Resolved]
  - Drug hypersensitivity [Unknown]
  - Skin ulcer [Not Recovered/Not Resolved]
  - Pruritus [Not Recovered/Not Resolved]
  - Renal failure [Unknown]
  - Peripheral arterial occlusive disease [Unknown]
  - Lipoma [Unknown]
  - Periarthritis [Recovered/Resolved]
  - Insomnia [Unknown]
  - Joint crepitation [Unknown]
  - Pain in extremity [Unknown]
  - Skin disorder [Not Recovered/Not Resolved]
  - Sleep disorder [Unknown]
  - Arthralgia [Unknown]
  - Arthropathy [Unknown]
  - Synovitis [Unknown]
  - Nodal osteoarthritis [Unknown]
  - Fatigue [Unknown]
  - Injury [Unknown]
  - Joint swelling [Unknown]
  - Hepatitis C [Unknown]
  - Rash erythematous [Not Recovered/Not Resolved]
  - Spinal deformity [Unknown]
  - Dry mouth [Unknown]
  - Vitamin D deficiency [Unknown]
  - Dyspepsia [Unknown]
  - Tenderness [Unknown]

NARRATIVE: CASE EVENT DATE: 2015
